FAERS Safety Report 9887476 (Version 1)
Quarter: 2013Q4

REPORT INFORMATION
  Report Type: Spontaneous
  Country: US (occurrence: None)
  Receive Date: 20131223
  Receipt Date: 20131223
  Transmission Date: 20140711
  Serious: No
  Sender: FDA-Public Use
  Company Number: 220494LEO

PATIENT
  Age: 58 Year
  Sex: Female

DRUGS (1)
  1. PICATO (0.015 %, GEL) [Suspect]
     Indication: ACTINIC KERATOSIS
     Route: 061

REACTIONS (10)
  - Application site pain [None]
  - Application site hyperaesthesia [None]
  - Application site pain [None]
  - Application site erythema [None]
  - Application site reaction [None]
  - Application site swelling [None]
  - Application site vesicles [None]
  - Application site exfoliation [None]
  - Drug administered at inappropriate site [None]
  - Wrong technique in drug usage process [None]
